FAERS Safety Report 11199363 (Version 1)
Quarter: 2015Q2

REPORT INFORMATION
  Report Type: Spontaneous
  Country: US (occurrence: None)
  Receive Date: 20150608
  Receipt Date: 20150608
  Transmission Date: 20150821
  Serious: Yes (Hospitalization)
  Sender: FDA-Public Use
  Company Number: HYP201504-000040

PATIENT
  Age: 2 Year
  Sex: Female
  Weight: 19.5 kg

DRUGS (2)
  1. RAVICTI [Suspect]
     Active Substance: GLYCEROL PHENYLBUTYRATE
     Indication: ORNITHINE TRANSCARBAMOYLASE DEFICIENCY
     Dates: start: 201404
  2. CITRULLINE [Concomitant]
     Active Substance: CITRULLINE

REACTIONS (4)
  - Hypophagia [None]
  - Ammonia increased [None]
  - Upper respiratory tract infection [None]
  - Vomiting [None]

NARRATIVE: CASE EVENT DATE: 201412
